FAERS Safety Report 6189857-4 (Version None)
Quarter: 2009Q2

REPORT INFORMATION
  Report Type: 
  Country: None (occurrence: None)
  Receive Date: 20090512
  Receipt Date: 20090512
  Transmission Date: 20091009
  Serious: Yes (Other)
  Sender: FDA-Public Use
  Company Number: None

PATIENT
  Age: 63 Year
  Sex: Female
  Weight: 108 kg

DRUGS (13)
  1. AMIODARONE HCL [Suspect]
     Dosage: 200 MG BID PO
     Route: 048
  2. VALSARTAN [Concomitant]
  3. FUROSEMIDE [Concomitant]
  4. GABAPENTIN [Concomitant]
  5. HYDROCODONE BITARTRATE + ACETAMINOPHEN [Concomitant]
  6. APAP TAB [Concomitant]
  7. ALBUTEROL SULFATE AND IPRATROPIUM BROMIDE [Concomitant]
  8. DILTIAZEM [Concomitant]
  9. DOCUSATE [Concomitant]
  10. FERROUS SULFATE TAB [Concomitant]
  11. LEVOTHYROXINE SODIUM [Concomitant]
  12. WARFARIN SODIUM [Concomitant]
  13. BACTRIM [Suspect]

REACTIONS (6)
  - ASTHENIA [None]
  - NEUTROPENIA [None]
  - OEDEMA [None]
  - RENAL FAILURE ACUTE [None]
  - TREMOR [None]
  - WHITE BLOOD CELL COUNT DECREASED [None]
